FAERS Safety Report 13966046 (Version 1)
Quarter: 2017Q3

REPORT INFORMATION
  Report Type: Spontaneous
  Country: BE (occurrence: BE)
  Receive Date: 20170913
  Receipt Date: 20170913
  Transmission Date: 20171128
  Serious: Yes (Other)
  Sender: FDA-Public Use
  Company Number: BE-PFIZER INC-1139788

PATIENT
  Age: 51 Year
  Sex: Male

DRUGS (5)
  1. TIGECYCLINE. [Concomitant]
     Active Substance: TIGECYCLINE
     Indication: SEPSIS
     Dosage: 100 MG, SINGLE, LOADING DOSE
  2. VANCOMYCIN [Concomitant]
     Active Substance: VANCOMYCIN
     Indication: SEPSIS
     Dosage: TARGET PLATEAU CONCENTRATION 20-25 UG/ML
     Route: 041
  3. MEROPENEM. [Suspect]
     Active Substance: MEROPENEM
     Indication: SEPSIS
     Dosage: 1 G, EVERY EIGHT HOURS
     Route: 042
  4. TIGECYCLINE. [Concomitant]
     Active Substance: TIGECYCLINE
     Dosage: 50 MG, 2X/DAY
  5. COLISTIN [Interacting]
     Active Substance: COLISTIN
     Indication: ESCHERICHIA INFECTION
     Dosage: 3 MILLION IU, EVERY EIGHT HOURS

REACTIONS (5)
  - Neurotoxicity [Recovered/Resolved]
  - Apnoea [Unknown]
  - Respiratory muscle weakness [Unknown]
  - Potentiating drug interaction [Unknown]
  - Seizure [Recovered/Resolved]
